FAERS Safety Report 16513535 (Version 3)
Quarter: 2019Q3

REPORT INFORMATION
  Report Type: Report from Study
  Country: US (occurrence: US)
  Receive Date: 20190701
  Receipt Date: 20190709
  Transmission Date: 20191004
  Serious: Yes (Hospitalization, Other)
  Sender: FDA-Public Use
  Company Number: US-BRISTOL-MYERS SQUIBB COMPANY-BMS-2019-062113

PATIENT
  Age: 72 Year
  Sex: Female
  Weight: 81.64 kg

DRUGS (6)
  1. HUMIRA [Suspect]
     Active Substance: ADALIMUMAB
     Indication: PRODUCT USED FOR UNKNOWN INDICATION
     Dosage: 40 MILLIGRAM ONCE IN 2 WEEKS
     Route: 058
  2. CRESTOR [Concomitant]
     Active Substance: ROSUVASTATIN CALCIUM
     Indication: PRODUCT USED FOR UNKNOWN INDICATION
     Route: 065
  3. APIXABAN [Suspect]
     Active Substance: APIXABAN
     Indication: PRODUCT USED FOR UNKNOWN INDICATION
     Dosage: UNK
     Route: 065
  4. LIALDA [Concomitant]
     Active Substance: MESALAMINE
     Indication: PRODUCT USED FOR UNKNOWN INDICATION
     Route: 065
  5. HUMIRA [Suspect]
     Active Substance: ADALIMUMAB
     Indication: COLITIS ULCERATIVE
     Dosage: 40 MILLIGRAM ONCE IN 2 WEEKS
     Route: 058
     Dates: start: 20170909, end: 20180612
  6. AMLODIPINE/BENAZEPRIL [Concomitant]
     Active Substance: AMLODIPINE BESYLATE\BENAZEPRIL HYDROCHLORIDE
     Indication: PRODUCT USED FOR UNKNOWN INDICATION
     Route: 065

REACTIONS (6)
  - Pruritus [Unknown]
  - Transient ischaemic attack [Recovered/Resolved with Sequelae]
  - Cardiac disorder [Unknown]
  - Blindness unilateral [Recovered/Resolved with Sequelae]
  - Haematochezia [Unknown]
  - Haemorrhage [Unknown]

NARRATIVE: CASE EVENT DATE: 201710
